FAERS Safety Report 14635476 (Version 1)
Quarter: 2018Q1

REPORT INFORMATION
  Report Type: Spontaneous
  Country: US (occurrence: US)
  Receive Date: 20180314
  Receipt Date: 20180314
  Transmission Date: 20180509
  Serious: No
  Sender: FDA-Public Use
  Company Number: US-009507513-1803USA005914

PATIENT
  Age: 5 Year
  Sex: Female

DRUGS (3)
  1. PROVENTIL [Suspect]
     Active Substance: ALBUTEROL
     Indication: COUGH
     Dosage: 2 PUFFS/EVERY 4 TO 6 HOURS UNTIL COUGH AND WHEEZE WAS SOLVED
     Route: 055
     Dates: start: 20180312
  2. PREDNISOLONE. [Concomitant]
     Active Substance: PREDNISOLONE
     Dosage: 22.5 MG TWICE A DAY
  3. PROVENTIL [Suspect]
     Active Substance: ALBUTEROL
     Indication: WHEEZING

REACTIONS (1)
  - Dark circles under eyes [Unknown]

NARRATIVE: CASE EVENT DATE: 20180312
